FAERS Safety Report 5580239-2 (Version None)
Quarter: 2007Q4

REPORT INFORMATION
  Report Type: 
  Country: None (occurrence: None)
  Receive Date: 20071231
  Receipt Date: 20071231
  Transmission Date: 20080405
  Serious: Yes (Life-Threatening, Hospitalization)
  Sender: FDA-Public Use
  Company Number: None

PATIENT
  Age: 60 Year
  Sex: Female
  Weight: 111.1313 kg

DRUGS (9)
  1. MORPHINE [Suspect]
     Indication: FEMUR FRACTURE
     Dosage: 4 MG IV Q4H PRN
     Route: 042
     Dates: start: 20070618
  2. MORPHINE [Suspect]
     Indication: PAIN
     Dosage: 4 MG IV Q4H PRN
     Route: 042
     Dates: start: 20070618
  3. GABAPENTIN [Concomitant]
  4. STARLIX [Concomitant]
  5. ZEMPLAR [Concomitant]
  6. FUROSEMIDE [Concomitant]
  7. CADUET [Concomitant]
  8. METOLAZONE [Concomitant]
  9. GLIPIZIDE [Concomitant]

REACTIONS (1)
  - CARDIO-RESPIRATORY ARREST [None]
